FAERS Safety Report 8537502 (Version 2)
Quarter: 2022Q4

REPORT INFORMATION
  Report Type: Report from Study
  Country: FR (occurrence: FR)
  Receive Date: 20120430
  Receipt Date: 20221104
  Transmission Date: 20230113
  Serious: Yes (Hospitalization, Disabling, Other)
  Sender: FDA-Public Use
  Company Number: PHHO2008FR01216

PATIENT
  Age: 20 Year
  Sex: Female
  Weight: 50 kg

DRUGS (5)
  1. CANAKINUMAB [Suspect]
     Active Substance: CANAKINUMAB
     Indication: Muckle-Wells syndrome
     Dosage: EVERY 8 WEEKS.
     Route: 058
     Dates: start: 20070914, end: 20071210
  2. PLACEBO [Suspect]
     Active Substance: UNSPECIFIED INGREDIENT
     Indication: Muckle-Wells syndrome
     Dosage: UNK
     Route: 058
  3. VOGALENE [Suspect]
     Active Substance: METOPIMAZINE
     Indication: Product used for unknown indication
     Dosage: UNK
     Route: 065
  4. ACUPAN [Suspect]
     Active Substance: NEFOPAM HYDROCHLORIDE
     Indication: Product used for unknown indication
     Dosage: UNK
     Route: 065
  5. ACETYLLEUCINE, L- [Suspect]
     Active Substance: ACETYLLEUCINE, L-
     Indication: Product used for unknown indication
     Dosage: UNK
     Route: 065

REACTIONS (16)
  - Vertigo [Recovered/Resolved]
  - Glaucoma [Recovering/Resolving]
  - Angle closure glaucoma [Recovering/Resolving]
  - Muckle-Wells syndrome [Recovering/Resolving]
  - Blindness [Recovering/Resolving]
  - Headache [Recovering/Resolving]
  - Vomiting [Recovering/Resolving]
  - Fatigue [Recovering/Resolving]
  - Pyrexia [Recovering/Resolving]
  - C-reactive protein increased [Recovered/Resolved]
  - Nystagmus [Recovering/Resolving]
  - Deafness [Recovering/Resolving]
  - Papillitis [Recovering/Resolving]
  - Hypertonia [Unknown]
  - Post lumbar puncture syndrome [Unknown]
  - Sciatica [Unknown]

NARRATIVE: CASE EVENT DATE: 20071211
